FAERS Safety Report 9249029 (Version 1)
Quarter: 2013Q1

REPORT INFORMATION
  Report Type: Spontaneous
  Country: US (occurrence: None)
  Receive Date: 20130305
  Receipt Date: 20130305
  Transmission Date: 20140127
  Serious: Yes (Other)
  Sender: FDA-Public Use
  Company Number: 163-21880-12091160

PATIENT
  Age: 63 Year
  Sex: Male
  Weight: 98.88 kg

DRUGS (3)
  1. REVLIMID [Suspect]
     Indication: PLASMA CELL MYELOMA
     Route: 048
     Dates: start: 201007
  2. VELCADE (BORTEZOMIB) [Concomitant]
  3. BACTRIM (BACTRIM) [Concomitant]

REACTIONS (4)
  - Platelet count decreased [None]
  - Tinea infection [None]
  - Rash [None]
  - Urticaria [None]
